FAERS Safety Report 23102982 (Version 1)
Quarter: 2023Q4

REPORT INFORMATION
  Report Type: Other
  Country: EG (occurrence: EG)
  Receive Date: 20231025
  Receipt Date: 20231025
  Transmission Date: 20240110
  Serious: Yes (Other)
  Sender: FDA-Public Use
  Company Number: EG-002147023-NVSC2023EG222149

PATIENT
  Age: 35 Year
  Sex: Female

DRUGS (2)
  1. LUCENTIS [Suspect]
     Active Substance: RANIBIZUMAB
     Indication: Choroidal neovascularisation
     Dosage: FULL VIAL FOR BOTH EYES, 10 MILLIGRAM PER MILLILITRE
     Route: 050
     Dates: end: 2023
  2. LUCENTIS [Suspect]
     Active Substance: RANIBIZUMAB
     Dosage: NOW FOR ONE EYE 1/2 VIAL
     Route: 050

REACTIONS (5)
  - Blindness [Not Recovered/Not Resolved]
  - Eye disorder [Not Recovered/Not Resolved]
  - Visual impairment [Not Recovered/Not Resolved]
  - Headache [Not Recovered/Not Resolved]
  - Vision blurred [Not Recovered/Not Resolved]

NARRATIVE: CASE EVENT DATE: 20230201
